FAERS Safety Report 5877089-6 (Version None)
Quarter: 2008Q3

REPORT INFORMATION
  Report Type: 
  Country: None (occurrence: None)
  Receive Date: 20080910
  Receipt Date: 20080904
  Transmission Date: 20090109
  Serious: Yes (Other)
  Sender: FDA-Public Use
  Company Number: PHHY2008FR18863

PATIENT
  Sex: Male
  Weight: 68 kg

DRUGS (10)
  1. EXELON [Suspect]
     Indication: DEMENTIA ALZHEIMER'S TYPE
     Dosage: 9.5 MG, QD
     Route: 062
     Dates: start: 20080725, end: 20080730
  2. TIMOPTIC [Interacting]
     Indication: GLAUCOMA
     Dosage: 1 DROP, BID
     Dates: start: 20070501, end: 20080805
  3. REQUIP [Concomitant]
     Dosage: 9.5 MG, QD
  4. REQUIP [Concomitant]
     Dosage: 2 MG, QD
  5. ESOMEPRAZOLE [Concomitant]
     Dosage: 40 MG, QD
  6. LASIX [Concomitant]
     Dosage: 40 MG, QD
  7. LASIX [Concomitant]
     Dosage: 20 MG, QD
  8. HYPERIUM [Concomitant]
     Dosage: UNK
  9. PLAVIX [Concomitant]
     Dosage: UNK
  10. DEROXAT [Concomitant]
     Dosage: A HALF TABLET/ DAY

REACTIONS (2)
  - BRADYCARDIA [None]
  - DRUG INTERACTION [None]
